FAERS Safety Report 9452790 (Version 3)
Quarter: 2013Q3

REPORT INFORMATION
  Report Type: Report from Study
  Country: US (occurrence: US)
  Receive Date: 20130812
  Receipt Date: 20130926
  Transmission Date: 20140515
  Serious: Yes (Death, Hospitalization)
  Sender: FDA-Public Use
  Company Number: PHEH2013US016981

PATIENT
  Sex: Male

DRUGS (5)
  1. EXJADE [Suspect]
     Indication: LYMPHOMA
     Dosage: 500 MG, QD
     Route: 048
  2. EXJADE [Suspect]
     Dosage: 1500 MG QD
     Route: 048
  3. EXJADE [Suspect]
     Dosage: 1 DF, DAILY
  4. EXJADE [Suspect]
     Dosage: 1500 MG, QD
     Route: 048
  5. EXJADE [Suspect]
     Dosage: 500 MG, QD
     Route: 048

REACTIONS (4)
  - Death [Fatal]
  - Cerebrovascular accident [Unknown]
  - Dysstasia [Unknown]
  - Memory impairment [Unknown]
